FAERS Safety Report 17219199 (Version 1)
Quarter: 2020Q1

REPORT INFORMATION
  Report Type: Spontaneous
  Country: US (occurrence: US)
  Receive Date: 20191230
  Receipt Date: 20191230
  Transmission Date: 20200409
  Serious: Yes (Other)
  Sender: FDA-Public Use
  Company Number: None

PATIENT
  Age: 77 Year
  Sex: Female
  Weight: 59.4 kg

DRUGS (1)
  1. IBRANCE [Suspect]
     Active Substance: PALBOCICLIB
     Indication: BREAST CANCER
     Route: 048
     Dates: start: 20190925

REACTIONS (5)
  - Peripheral swelling [None]
  - Arthralgia [None]
  - Alopecia [None]
  - Feeling cold [None]
  - Myalgia [None]

NARRATIVE: CASE EVENT DATE: 20191230
